FAERS Safety Report 8093413-0 (Version None)
Quarter: 2012Q1

REPORT INFORMATION
  Report Type: 
  Country: None (occurrence: None)
  Receive Date: 20120131
  Receipt Date: 20120118
  Transmission Date: 20120608
  Serious: Yes (Hospitalization)
  Sender: FDA-Public Use
  Company Number: GB-PFIZER INC-GB-WYE-H15925110

PATIENT
  Age: 71 Year
  Sex: Male
  Weight: 59.4 kg

DRUGS (8)
  1. TRAMADOL HYDROCHLORIDE [Concomitant]
     Indication: BACK PAIN
     Dosage: UNK
     Route: 065
     Dates: start: 20080101
  2. TEMSIROLIMUS [Suspect]
     Indication: RENAL CELL CARCINOMA
     Dosage: 25 MG, 1X/WK
     Route: 042
     Dates: start: 20100603
  3. FLUTICASONE [Concomitant]
     Indication: EMPHYSEMA
     Dosage: UNK
     Route: 055
     Dates: start: 20070101
  4. CARBOCISTEINE [Concomitant]
     Dosage: UNK
     Route: 048
     Dates: start: 20080101
  5. SALBUTAMOL EASI-BREATHE [Concomitant]
     Indication: EMPHYSEMA
     Dosage: UNK
     Route: 055
     Dates: start: 20070101
  6. SALMETEROL [Concomitant]
     Indication: EMPHYSEMA
     Dosage: UNK
     Route: 055
     Dates: start: 20070101
  7. ACETAMINOPHEN AND CODEINE PHOSPHATE [Concomitant]
     Indication: BACK PAIN
     Dosage: UNK
     Route: 065
     Dates: start: 20080101
  8. FERROUS FUMARATE [Concomitant]
     Indication: ANAEMIA
     Dosage: UNK
     Route: 065
     Dates: start: 20080101

REACTIONS (2)
  - VOMITING [None]
  - SALIVARY HYPERSECRETION [None]
